FAERS Safety Report 5382489-7 (Version None)
Quarter: 2007Q3

REPORT INFORMATION
  Report Type: 
  Country: None (occurrence: None)
  Receive Date: 20070710
  Receipt Date: 20070705
  Transmission Date: 20080115
  Serious: Yes (Hospitalization)
  Sender: FDA-Public Use
  Company Number: FRWYE982606JUL07

PATIENT
  Age: 50 Year
  Sex: Male

DRUGS (4)
  1. ADVIL LIQUI-GELS [Suspect]
     Indication: PYREXIA
     Dosage: TWO INTAKE OF AN UNSPECIFIED DOSE STRENGTH
     Route: 048
     Dates: start: 20070208, end: 20070208
  2. ADVIL LIQUI-GELS [Suspect]
     Indication: NASOPHARYNGITIS
  3. PARACETAMOL [Suspect]
     Indication: PYREXIA
     Dosage: TWO INTAKE OF AN UNSPECIFIED DOSE STRENGTH
     Route: 048
     Dates: start: 20070208, end: 20070208
  4. PARACETAMOL [Suspect]
     Indication: NASOPHARYNGITIS

REACTIONS (2)
  - EYELID OEDEMA [None]
  - FACE OEDEMA [None]
